FAERS Safety Report 10055924 (Version 2)
Quarter: 2014Q2

REPORT INFORMATION
  Report Type: Spontaneous
  Country: GB (occurrence: GB)
  Receive Date: 20140403
  Receipt Date: 20140424
  Transmission Date: 20141212
  Serious: Yes (Hospitalization)
  Sender: FDA-Public Use
  Company Number: GB-MYLANLABS-2014S1006861

PATIENT
  Age: 74 Year
  Sex: Female

DRUGS (15)
  1. DOXAZOSIN [Suspect]
     Indication: HYPERTENSION
     Dosage: 4 MG, BID
     Route: 048
     Dates: start: 2009, end: 20120907
  2. BLINDED STUDY MEDICATION [Suspect]
     Indication: RENAL FAILURE
     Route: 042
  3. BLINDED STUDY MEDICATION [Suspect]
     Indication: PLASMA CELL MYELOMA
     Route: 042
  4. BLINDED STUDY MEDICATION [Suspect]
     Indication: RENAL FAILURE
     Dosage: 700 MG, QD
     Route: 042
     Dates: start: 20120807
  5. BLINDED STUDY MEDICATION [Suspect]
     Indication: PLASMA CELL MYELOMA
     Dosage: 700 MG, QD
     Route: 042
     Dates: start: 20120807
  6. BORTEZOMIB [Suspect]
     Indication: RENAL FAILURE
     Route: 048
  7. BORTEZOMIB [Suspect]
     Indication: PLASMA CELL MYELOMA
     Route: 048
  8. BORTEZOMIB [Suspect]
     Indication: RENAL FAILURE
     Dosage: 2.1 MG, QD
     Route: 048
     Dates: start: 20120807, end: 20120904
  9. BORTEZOMIB [Suspect]
     Indication: PLASMA CELL MYELOMA
     Dosage: 2.1 MG, QD
     Route: 048
     Dates: start: 20120807, end: 20120904
  10. DEXAMETHASONE [Suspect]
     Indication: RENAL FAILURE
     Route: 048
  11. DEXAMETHASONE [Suspect]
     Indication: PLASMA CELL MYELOMA
     Route: 048
  12. DEXAMETHASONE [Suspect]
     Indication: RENAL FAILURE
     Dosage: 20 MG, QD
     Route: 048
     Dates: start: 20120807
  13. DEXAMETHASONE [Suspect]
     Indication: PLASMA CELL MYELOMA
     Dosage: 20 MG, QD
     Route: 048
     Dates: start: 20120807
  14. NIFEDIPINE [Suspect]
     Indication: HYPERTENSION
     Dosage: 90 MG, QD
     Route: 048
     Dates: start: 2009, end: 20120907
  15. PROPRANOLOL [Suspect]
     Indication: HYPERTENSION
     Dosage: 40 MG, BID
     Route: 048
     Dates: start: 2009, end: 20120907

REACTIONS (1)
  - Renal failure acute [Recovering/Resolving]
